FAERS Safety Report 4410639-5 (Version None)
Quarter: 2004Q3

REPORT INFORMATION
  Report Type: 
  Country: None (occurrence: None)
  Receive Date: 20040726
  Receipt Date: 20040712
  Transmission Date: 20050211
  Serious: Yes (Hospitalization)
  Sender: FDA-Public Use
  Company Number: NSADSS2002019158

PATIENT
  Age: 33 Year
  Sex: Male

DRUGS (2)
  1. REMICADE [Suspect]
     Indication: CROHN'S DISEASE
     Dosage: 5 MG/KG, 1 IN 1 AS NECESSARY INTRAVENOUS DRIP
     Route: 041
     Dates: start: 20000516
  2. AZATHIOPRINE [Concomitant]

REACTIONS (15)
  - ACUTE RESPIRATORY DISTRESS SYNDROME [None]
  - ANTIBODY TEST ABNORMAL [None]
  - ARTHRALGIA [None]
  - CHILLS [None]
  - CROHN'S DISEASE [None]
  - EOSINOPHILIC PNEUMONIA [None]
  - HYPERSENSITIVITY [None]
  - MYALGIA [None]
  - NAUSEA [None]
  - PANCREATIC ENZYMES ABNORMAL [None]
  - PYREXIA [None]
  - RENAL FAILURE [None]
  - RESPIRATORY FAILURE [None]
  - TUBERCULOSIS [None]
  - VOMITING [None]
